FAERS Safety Report 19518924 (Version 1)
Quarter: 2021Q3

REPORT INFORMATION
  Report Type: Spontaneous
  Country: US (occurrence: US)
  Receive Date: 20210712
  Receipt Date: 20210712
  Transmission Date: 20211014
  Serious: Yes (Hospitalization)
  Sender: FDA-Public Use
  Company Number: US-BEH-2021133715

PATIENT
  Age: 71 Year
  Sex: Female

DRUGS (1)
  1. PRIVIGEN [Suspect]
     Active Substance: HUMAN IMMUNOGLOBULIN G
     Indication: POLYMYOSITIS
     Dosage: 35 GRAM DAILY FOR 4 DAYS EVERY 12 DAYS
     Route: 042
     Dates: start: 20200918

REACTIONS (4)
  - Pneumonia [Unknown]
  - Off label use [Unknown]
  - Tachycardia [Unknown]
  - No adverse event [Unknown]

NARRATIVE: CASE EVENT DATE: 20210614
